FAERS Safety Report 16761040 (Version 1)
Quarter: 2019Q3

REPORT INFORMATION
  Report Type: Spontaneous
  Country: DE (occurrence: DE)
  Receive Date: 20190830
  Receipt Date: 20190830
  Transmission Date: 20191005
  Serious: Yes (Other)
  Sender: FDA-Public Use
  Company Number: DE-ASTRAZENECA-2019SF21984

PATIENT
  Age: 53 Year
  Sex: Male

DRUGS (5)
  1. SYMBICORT [Suspect]
     Active Substance: BUDESONIDE\FORMOTEROL FUMARATE DIHYDRATE
     Dosage: 320.0 / 9.0 UG UNKNOWN
     Route: 055
  2. BRETARIS GENUAIR [Suspect]
     Active Substance: ACLIDINIUM BROMIDE
     Route: 055
  3. SYMBICORT [Suspect]
     Active Substance: BUDESONIDE\FORMOTEROL FUMARATE DIHYDRATE
     Dosage: 320.0 / 9.0 UG UNKNOWN
     Route: 055
  4. SALBUTAMOL [Concomitant]
     Active Substance: ALBUTEROL
     Dosage: IF NEEDED
  5. DECORTIN [Concomitant]
     Active Substance: PREDNISONE
     Dosage: IF NEEDED

REACTIONS (5)
  - Renal cyst [Unknown]
  - Chest pain [Unknown]
  - Respiratory symptom [Recovering/Resolving]
  - Chest discomfort [Unknown]
  - Dyspnoea [Unknown]
